FAERS Safety Report 9721628 (Version 2)
Quarter: 2013Q4

REPORT INFORMATION
  Report Type: Report from Study
  Country: US (occurrence: US)
  Receive Date: 20131201
  Receipt Date: 20131201
  Transmission Date: 20140711
  Serious: No
  Sender: FDA-Public Use
  Company Number: US-ABBVIE-13P-163-1067035-00

PATIENT
  Age: 34 Year
  Sex: Male
  Weight: 111.23 kg

DRUGS (4)
  1. ANDROGEL [Suspect]
     Indication: FATIGUE
     Dosage: 4 PUMPS DAILY
     Route: 061
     Dates: start: 20121117
  2. ANDROGEL [Suspect]
     Indication: ERECTILE DYSFUNCTION
  3. CLONAZEPAM [Concomitant]
     Indication: PRODUCT USED FOR UNKNOWN INDICATION
  4. SEROQUEL [Concomitant]
     Indication: PRODUCT USED FOR UNKNOWN INDICATION

REACTIONS (2)
  - Feeling abnormal [Not Recovered/Not Resolved]
  - Nervousness [Recovered/Resolved]
